FAERS Safety Report 23966812 (Version 1)
Quarter: 2024Q2

REPORT INFORMATION
  Report Type: Spontaneous
  Country: US (occurrence: US)
  Receive Date: 20240612
  Receipt Date: 20240612
  Transmission Date: 20240716
  Serious: Yes (Other)
  Sender: FDA-Public Use
  Company Number: US-BELUSA-2024BELLIT0068

PATIENT

DRUGS (1)
  1. PHENYLEPHRINE HYDROCHLORIDE [Suspect]
     Active Substance: PHENYLEPHRINE HYDROCHLORIDE
     Indication: Vasopressive therapy
     Route: 065

REACTIONS (1)
  - Cardiomyopathy [Recovered/Resolved]
